FAERS Safety Report 5712148-X (Version None)
Quarter: 2008Q2

REPORT INFORMATION
  Report Type: 
  Country: None (occurrence: None)
  Receive Date: 20080417
  Receipt Date: 20080410
  Transmission Date: 20081010
  Serious: Yes (Death, Other)
  Sender: FDA-Public Use
  Company Number: 2008SP006882

PATIENT
  Sex: Female

DRUGS (1)
  1. INTERFERON (MANUFACTURER UNKNOWN) [Suspect]
     Indication: HEPATITIS C
     Dates: start: 20030101

REACTIONS (2)
  - COMA [None]
  - PNEUMONIA [None]
